FAERS Safety Report 15435774 (Version 1)
Quarter: 2018Q3

REPORT INFORMATION
  Report Type: Spontaneous
  Country: US (occurrence: US)
  Receive Date: 20180924
  Receipt Date: 20180924
  Transmission Date: 20181010
  Serious: Yes (Disabling, Other)
  Sender: FDA-Public Use
  Company Number: None

PATIENT
  Age: 31 Year
  Sex: Female
  Weight: 61.23 kg

DRUGS (1)
  1. MIRENA [Suspect]
     Active Substance: LEVONORGESTREL
     Dates: start: 20150901, end: 20180731

REACTIONS (27)
  - Micturition urgency [None]
  - Nausea [None]
  - Hyperaesthesia [None]
  - Tremor [None]
  - Myalgia [None]
  - Migraine [None]
  - Photophobia [None]
  - Dry eye [None]
  - Dyspnoea [None]
  - Depression [None]
  - Hypophagia [None]
  - Lethargy [None]
  - Urinary retention [None]
  - Headache [None]
  - Hot flush [None]
  - Tooth loss [None]
  - Weight decreased [None]
  - Vision blurred [None]
  - Suicidal ideation [None]
  - Vulvovaginal dryness [None]
  - Food allergy [None]
  - Trichorrhexis [None]
  - Onychoclasis [None]
  - Hair growth abnormal [None]
  - Panic attack [None]
  - Dry mouth [None]
  - Anxiety [None]

NARRATIVE: CASE EVENT DATE: 20150901
